FAERS Safety Report 4636862-2 (Version None)
Quarter: 2005Q2

REPORT INFORMATION
  Report Type: 
  Country: None (occurrence: None)
  Receive Date: 20050414
  Receipt Date: 20050404
  Transmission Date: 20051028
  Serious: Yes (Hospitalization)
  Sender: FDA-Public Use
  Company Number: 2005CG00675

PATIENT
  Age: 75 Year
  Sex: Female
  Weight: 85 kg

DRUGS (6)
  1. MOPRAL [Suspect]
     Dosage: 20 MG QD PO
     Route: 048
  2. DOLIPRANE [Suspect]
     Dosage: 1 G TID PO
     Route: 048
  3. APROVEL [Suspect]
     Dosage: 150 MG QD PO
     Route: 048
  4. VIOXX [Suspect]
     Dosage: 25 MG QD PO
     Route: 048
  5. ARIXTRA [Suspect]
     Dosage: 1 DF QD SQ
     Route: 058
  6. FUMAFER [Suspect]
     Dosage: 1 DF TID PO
     Route: 048

REACTIONS (2)
  - DEEP VEIN THROMBOSIS [None]
  - POST PROCEDURAL COMPLICATION [None]
